FAERS Safety Report 15607924 (Version 1)
Quarter: 2018Q4

REPORT INFORMATION
  Report Type: Spontaneous
  Country: JP (occurrence: JP)
  Receive Date: 20181112
  Receipt Date: 20181112
  Transmission Date: 20190205
  Serious: Yes (Life-Threatening, Other)
  Sender: FDA-Public Use
  Company Number: JP-ELI_LILLY_AND_COMPANY-JP201811004684

PATIENT
  Age: 43 Year
  Sex: Male

DRUGS (2)
  1. QUETIAPINE. [Concomitant]
     Active Substance: QUETIAPINE
  2. ZYPREXA [Suspect]
     Active Substance: OLANZAPINE
     Indication: PRODUCT USED FOR UNKNOWN INDICATION
     Dosage: 1.25 MG, DAILY
     Route: 048

REACTIONS (3)
  - Wrong technique in product usage process [Unknown]
  - Hypoglycaemia [Unknown]
  - Cardio-respiratory arrest [Recovered/Resolved]
